FAERS Safety Report 8109789-1 (Version None)
Quarter: 2012Q1

REPORT INFORMATION
  Report Type: 
  Country: None (occurrence: None)
  Receive Date: 20120202
  Receipt Date: 20120119
  Transmission Date: 20120608
  Serious: No
  Sender: FDA-Public Use
  Company Number: US-AMGEN-USASP2011065778

PATIENT
  Age: 34 Year
  Sex: Female

DRUGS (2)
  1. ENBREL [Suspect]
     Dates: start: 20111101
  2. ENBREL [Suspect]
     Indication: PSORIATIC ARTHROPATHY
     Dosage: 50 MG, QWK
     Dates: start: 20111101

REACTIONS (7)
  - PAIN [None]
  - INJECTION SITE PRURITUS [None]
  - PYREXIA [None]
  - VOMITING [None]
  - INJECTION SITE SWELLING [None]
  - DIARRHOEA [None]
  - INJECTION SITE ERYTHEMA [None]
